FAERS Safety Report 9911545 (Version 3)
Quarter: 2014Q1

REPORT INFORMATION
  Report Type: Spontaneous
  Country: CA (occurrence: CA)
  Receive Date: 20140219
  Receipt Date: 20140312
  Transmission Date: 20141002
  Serious: Yes (Other)
  Sender: FDA-Public Use
  Company Number: PHHY2014CA016770

PATIENT
  Age: 47 Year
  Sex: Male

DRUGS (2)
  1. CIPROFLOXACIN SANDOZ [Suspect]
     Indication: URINARY TRACT INFECTION
     Dosage: 500 MG, BID
     Route: 048
     Dates: start: 20101107, end: 20110122
  2. CIPROFLOXACIN SANDOZ [Suspect]
     Indication: PROSTATE INFECTION

REACTIONS (24)
  - Feeling abnormal [Recovered/Resolved]
  - Amnesia [Recovering/Resolving]
  - Gastrointestinal disorder [Recovering/Resolving]
  - Dysphagia [Recovering/Resolving]
  - Neuropathy peripheral [Not Recovered/Not Resolved]
  - Tendon pain [Not Recovered/Not Resolved]
  - Psychotic disorder [Recovering/Resolving]
  - Depersonalisation [Recovered/Resolved]
  - Depression [Recovering/Resolving]
  - Anxiety [Recovering/Resolving]
  - Panic reaction [Recovering/Resolving]
  - Poverty of thought content [Recovering/Resolving]
  - Dyspnoea [Recovering/Resolving]
  - Heart rate irregular [Recovering/Resolving]
  - Visual impairment [Recovering/Resolving]
  - Tinnitus [Recovering/Resolving]
  - Glossodynia [Not Recovered/Not Resolved]
  - Bone pain [Recovering/Resolving]
  - Pain [Not Recovered/Not Resolved]
  - Hypoaesthesia [Not Recovered/Not Resolved]
  - Burning sensation [Not Recovered/Not Resolved]
  - Toothache [Not Recovered/Not Resolved]
  - Musculoskeletal pain [Not Recovered/Not Resolved]
  - Mitochondrial toxicity [Unknown]
